FAERS Safety Report 7009269-0 (Version None)
Quarter: 2010Q3

REPORT INFORMATION
  Report Type: 
  Country: None (occurrence: None)
  Receive Date: 20100923
  Receipt Date: 20100914
  Transmission Date: 20110219
  Serious: Yes (Hospitalization)
  Sender: FDA-Public Use
  Company Number: FR-BRISTOL-MYERS SQUIBB COMPANY-15295470

PATIENT
  Age: 56 Year
  Sex: Male
  Weight: 73 kg

DRUGS (4)
  1. CETUXIMAB [Suspect]
     Indication: HEAD AND NECK CANCER
     Dosage: 5MG/ML. DRUG INTERRUPTED ON 31-AUG-2010.
     Route: 042
     Dates: start: 20100831
  2. CISPLATIN [Suspect]
     Indication: HEAD AND NECK CANCER
     Dosage: DRUG INTERRUPTED ON 31-AUG-2010
     Route: 042
     Dates: start: 20100831
  3. CILENGITIDE [Suspect]
     Indication: HEAD AND NECK CANCER
     Dosage: DRUG INTERRUPTED ON 03-SEP-2010.
     Route: 042
     Dates: start: 20100831
  4. FLUOROURACIL [Suspect]
     Indication: HEAD AND NECK CANCER
     Dosage: DAY 1 TO DAY 4 OF CYCLE. DRUG INTERRUPTED ON 04-SEP-2010.
     Route: 042
     Dates: start: 20100831

REACTIONS (4)
  - HYPONATRAEMIA [None]
  - OEDEMA PERIPHERAL [None]
  - RENAL IMPAIRMENT [None]
  - STOMATITIS [None]
